FAERS Safety Report 6507184-X (Version None)
Quarter: 2009Q4

REPORT INFORMATION
  Report Type: 
  Country: None (occurrence: None)
  Receive Date: 20091127
  Receipt Date: 20090528
  Transmission Date: 20100525
  Serious: Yes (Hospitalization)
  Sender: FDA-Public Use
  Company Number: US200906000532

PATIENT
  Age: 80 Year
  Sex: Female

DRUGS (3)
  1. BYETTA [Suspect]
     Indication: BLOOD GLUCOSE ABNORMAL
     Dosage: 5UG, SUBCUTANEOUS
     Route: 058
     Dates: end: 20090501
  2. METFORMIN HCL [Concomitant]
  3. ORAL ANTIDIABETICS [Concomitant]

REACTIONS (3)
  - DIABETES MELLITUS INADEQUATE CONTROL [None]
  - DRUG DISPENSING ERROR [None]
  - HYPOGLYCAEMIA [None]
